FAERS Safety Report 11508322 (Version 3)
Quarter: 2015Q4

REPORT INFORMATION
  Report Type: Spontaneous
  Country: US (occurrence: US)
  Receive Date: 20150903
  Receipt Date: 20151027
  Transmission Date: 20160304
  Serious: No
  Sender: FDA-Public Use
  Company Number: US-ELI_LILLY_AND_COMPANY-US200907005612

PATIENT
  Age: 79 Year
  Sex: Female

DRUGS (8)
  1. HUMALOG [Suspect]
     Active Substance: INSULIN LISPRO
     Dosage: UNK, UNK
     Dates: start: 1994
  2. LISINOPRIL + HIDROCLOROTIAZIDA [Concomitant]
     Active Substance: HYDROCHLOROTHIAZIDE\LISINOPRIL
  3. VITAMIN D [Concomitant]
     Active Substance: CHOLECALCIFEROL
  4. FORTEO [Suspect]
     Active Substance: TERIPARATIDE
     Dosage: 20 UG, DAILY (1/D)
     Dates: start: 2009
  5. HUMALOG [Suspect]
     Active Substance: INSULIN LISPRO
  6. ECOTRIN [Concomitant]
     Active Substance: ASPIRIN
  7. FORTEO [Suspect]
     Active Substance: TERIPARATIDE
     Indication: OSTEOPOROSIS
     Dosage: 20 UG, DAILY (1/D)
     Dates: start: 200811, end: 2009
  8. LANTUS [Concomitant]
     Active Substance: INSULIN GLARGINE

REACTIONS (6)
  - Blood glucose increased [Not Recovered/Not Resolved]
  - Blood calcium increased [Unknown]
  - Tooth infection [Recovering/Resolving]
  - Blood glucose increased [Recovered/Resolved]
  - Cystitis [Recovering/Resolving]
  - Therapeutic product ineffective [Not Recovered/Not Resolved]

NARRATIVE: CASE EVENT DATE: 200811
